FAERS Safety Report 9148472 (Version 3)
Quarter: 2013Q4

REPORT INFORMATION
  Report Type: Spontaneous
  Country: GB (occurrence: None)
  Receive Date: 20130205
  Receipt Date: 20131015
  Transmission Date: 20140711
  Serious: Yes (Death, Other)
  Sender: FDA-Public Use
  Company Number: AUR-APL-2013-01101

PATIENT
  Age: 42 Year
  Sex: Male

DRUGS (2)
  1. FLUOXETINE (FLUOXETINE) [Suspect]
     Indication: DEPRESSION
     Route: 048
     Dates: start: 20120224, end: 20120301
  2. ZOPICLONE (ZOPICLONE) [Concomitant]

REACTIONS (2)
  - Suicidal behaviour [None]
  - Completed suicide [None]
